FAERS Safety Report 13073498 (Version 3)
Quarter: 2017Q1

REPORT INFORMATION
  Report Type: Spontaneous
  Country: US (occurrence: US)
  Receive Date: 20161229
  Receipt Date: 20170310
  Transmission Date: 20170428
  Serious: Yes (Other)
  Sender: FDA-Public Use
  Company Number: US-TEVA-724401USA

PATIENT
  Age: 59 Year
  Sex: Female

DRUGS (8)
  1. AMPYRA [Concomitant]
     Active Substance: DALFAMPRIDINE
  2. BIOTIN [Concomitant]
     Active Substance: BIOTIN
  3. PREMARIN [Concomitant]
     Active Substance: ESTROGENS, CONJUGATED
  4. COPAXONE [Suspect]
     Active Substance: GLATIRAMER ACETATE
     Indication: MULTIPLE SCLEROSIS
     Route: 058
  5. GINKGO BILOBA [Concomitant]
     Active Substance: GINKGO
  6. VITAMIN D [Concomitant]
     Active Substance: CHOLECALCIFEROL
  7. LUMIGAN [Concomitant]
     Active Substance: BIMATOPROST
  8. VOLTAREN [Concomitant]
     Active Substance: DICLOFENAC SODIUM

REACTIONS (3)
  - Drug ineffective [Unknown]
  - Fall [Unknown]
  - Mobility decreased [Unknown]

NARRATIVE: CASE EVENT DATE: 201612
